FAERS Safety Report 13602653 (Version 1)
Quarter: 2017Q2

REPORT INFORMATION
  Report Type: Spontaneous
  Country: US (occurrence: US)
  Receive Date: 20170601
  Receipt Date: 20170601
  Transmission Date: 20170830
  Serious: No
  Sender: FDA-Public Use
  Company Number: US-ASTRAZENECA-2015SF10621

PATIENT
  Age: 732 Month
  Sex: Female
  Weight: 87.1 kg

DRUGS (8)
  1. SIMVASTATIN. [Concomitant]
     Active Substance: SIMVASTATIN
     Indication: RENAL DISORDER
     Dosage: HALF A 5 MG PILL DAILY
     Route: 048
     Dates: start: 201701
  2. LISINOPRIL. [Suspect]
     Active Substance: LISINOPRIL
     Indication: RENAL DISORDER
     Dosage: 10 MG
     Route: 048
     Dates: start: 2005
  3. SIMVASTATIN. [Concomitant]
     Active Substance: SIMVASTATIN
     Indication: RENAL DISORDER
     Route: 048
     Dates: start: 2006
  4. BYDUREON [Suspect]
     Active Substance: EXENATIDE
     Route: 065
     Dates: start: 201511
  5. METFORMIN [Concomitant]
     Active Substance: METFORMIN HYDROCHLORIDE
     Indication: DIABETES MELLITUS
     Dates: start: 2005
  6. FARXIGA [Suspect]
     Active Substance: DAPAGLIFLOZIN PROPANEDIOL
     Route: 048
     Dates: start: 201505, end: 201511
  7. BYETTA [Suspect]
     Active Substance: EXENATIDE
     Indication: DIABETES MELLITUS
     Dosage: 2
     Route: 065
  8. LISINOPRIL. [Suspect]
     Active Substance: LISINOPRIL
     Indication: RENAL DISORDER
     Dosage: 20 MG
     Route: 048
     Dates: start: 201701

REACTIONS (9)
  - Drug dose omission [Unknown]
  - Fungal infection [Recovered/Resolved]
  - Underdose [Unknown]
  - Wrong technique in product usage process [Unknown]
  - Diarrhoea [Unknown]
  - Fatigue [Unknown]
  - Device malfunction [Unknown]
  - Vertigo [Unknown]
  - Needle issue [Unknown]

NARRATIVE: CASE EVENT DATE: 201611
